FAERS Safety Report 21307256 (Version 1)
Quarter: 2022Q3

REPORT INFORMATION
  Report Type: Report from Study
  Country: AU (occurrence: AU)
  Receive Date: 20220908
  Receipt Date: 20220908
  Transmission Date: 20221026
  Serious: Yes (Hospitalization)
  Sender: FDA-Public Use
  Company Number: AU-NOVARTISPH-NVSC2021AU235860

PATIENT
  Sex: Female

DRUGS (1)
  1. MAYZENT [Suspect]
     Active Substance: SIPONIMOD
     Indication: Secondary progressive multiple sclerosis
     Dosage: 2 MG, QD
     Route: 048
     Dates: start: 20210930

REACTIONS (6)
  - COVID-19 [Unknown]
  - Pain [Unknown]
  - Orthostatic hypotension [Unknown]
  - Headache [Unknown]
  - Peripheral swelling [Unknown]
  - Product dose omission issue [Unknown]
